FAERS Safety Report 22013674 (Version 1)
Quarter: 2023Q1

REPORT INFORMATION
  Report Type: Spontaneous
  Country: US (occurrence: US)
  Receive Date: 20230220
  Receipt Date: 20230220
  Transmission Date: 20230418
  Serious: Yes (Death, Hospitalization)
  Sender: FDA-Public Use
  Company Number: US-drreddys-LIT/USA/23/0161224

PATIENT
  Age: 67 Year
  Sex: Male

DRUGS (36)
  1. FENTANYL CITRATE [Suspect]
     Active Substance: FENTANYL CITRATE
     Indication: Cancer pain
     Dosage: ON HOSPITAL DAY 6?10
     Route: 040
  2. FENTANYL CITRATE [Suspect]
     Active Substance: FENTANYL CITRATE
     Dosage: ON HOSPITAL DAY 11?16,
     Route: 040
  3. FENTANYL CITRATE [Suspect]
     Active Substance: FENTANYL CITRATE
     Dosage: ONCE AS NEEDED, ON HOSPITAL DAY 17?19
     Route: 040
  4. FENTANYL CITRATE [Suspect]
     Active Substance: FENTANYL CITRATE
     Dosage: AS NEEDED ON HOSPITAL DAY 25?28
     Route: 040
  5. METHADONE [Suspect]
     Active Substance: METHADONE HYDROCHLORIDE
     Indication: Cancer pain
     Dosage: ON DAY 9
  6. METHADONE [Suspect]
     Active Substance: METHADONE HYDROCHLORIDE
     Dosage: ON DAY 10 OF PAIN ENCOUNTER
  7. METHADONE [Suspect]
     Active Substance: METHADONE HYDROCHLORIDE
     Dosage: ANALGESIC REGIMEN ON HOSPITAL DAY 1?10
     Route: 048
  8. METHADONE [Suspect]
     Active Substance: METHADONE HYDROCHLORIDE
     Dosage: ANALGESIC REGIMEN AS NEEDED ON HOSPITAL DAY 1?5.
     Route: 048
  9. IBUPROFEN [Concomitant]
     Active Substance: IBUPROFEN
     Indication: Product used for unknown indication
  10. PROPOFOL [Concomitant]
     Active Substance: PROPOFOL
     Indication: Product used for unknown indication
  11. ACETAMINOPHEN [Concomitant]
     Active Substance: ACETAMINOPHEN
     Indication: Product used for unknown indication
  12. PREDNISONE [Concomitant]
     Active Substance: PREDNISONE
     Indication: Product used for unknown indication
  13. DULOXETINE [Concomitant]
     Active Substance: DULOXETINE
     Indication: Product used for unknown indication
  14. KETOROLAC [Concomitant]
     Active Substance: KETOROLAC TROMETHAMINE
     Indication: Product used for unknown indication
  15. METHYLPREDNISOLONE [Concomitant]
     Active Substance: METHYLPREDNISOLONE
     Indication: Product used for unknown indication
  16. LORAZEPAM [Concomitant]
     Active Substance: LORAZEPAM
     Indication: Product used for unknown indication
  17. GABAPENTIN [Concomitant]
     Active Substance: GABAPENTIN
     Indication: Product used for unknown indication
  18. GABAPENTIN [Concomitant]
     Active Substance: GABAPENTIN
     Dosage: INCREASED DOSES
  19. HALOPERIDOL [Concomitant]
     Active Substance: HALOPERIDOL
     Indication: Product used for unknown indication
  20. DEXMEDETOMIDINE [Concomitant]
     Active Substance: DEXMEDETOMIDINE
     Indication: Product used for unknown indication
  21. BRENTUXIMAB [Concomitant]
     Active Substance: BRENTUXIMAB
     Indication: Product used for unknown indication
  22. MOGAMULIZUMAB [Concomitant]
     Active Substance: MOGAMULIZUMAB
     Indication: Cutaneous T-cell lymphoma
  23. CYCLOPHOSPHAMIDE [Concomitant]
     Active Substance: CYCLOPHOSPHAMIDE
     Indication: Product used for unknown indication
  24. ETOPOSIDE [Concomitant]
     Active Substance: ETOPOSIDE
     Indication: Product used for unknown indication
  25. OXYCODONE [Concomitant]
     Active Substance: OXYCODONE
     Indication: Cancer pain
     Dosage: 5-10 MG AS NEEDED, ON DAY 1?4 OF PAIN ENCOUNTER
  26. OXYCODONE [Concomitant]
     Active Substance: OXYCODONE
     Dosage: 15?20MG EVERY 4 HOURS AS NEEDED, ON DAY 5
  27. OXYCODONE [Concomitant]
     Active Substance: OXYCODONE
     Dosage: 40MG EVERY 4 HOURS AS NEEDED ON DAY 6 OF PAIN ENCOUNTER,
  28. OXYCODONE [Concomitant]
     Active Substance: OXYCODONE
     Dosage: INCREASED DOSES
  29. MORPHINE [Concomitant]
     Active Substance: MORPHINE
     Indication: Cancer pain
     Dosage: ON DAY 1?4
  30. MORPHINE [Concomitant]
     Active Substance: MORPHINE
     Dosage: ON DAY 5
  31. MORPHINE [Concomitant]
     Active Substance: MORPHINE
     Dosage: ON DAY 6
  32. MORPHINE [Concomitant]
     Active Substance: MORPHINE
     Dosage: ON DAY 7OF PAIN ENCOUNTER
  33. HYDROMORPHONE [Concomitant]
     Active Substance: HYDROMORPHONE
     Indication: Cancer pain
     Dosage: AS NEEDED ON DAY 7,
  34. HYDROMORPHONE [Concomitant]
     Active Substance: HYDROMORPHONE
     Dosage: 32 TO 34MG EVERY 4 HOURS AS NEEDED ON DAY 9 OF PAIN ENCOUNTER,
  35. KETAMINE [Concomitant]
     Active Substance: KETAMINE
     Indication: Cancer pain
     Dosage: CONTINUOUS INFUSION ON HOSPITAL DAY 11?16,
     Route: 042
  36. KETAMINE [Concomitant]
     Active Substance: KETAMINE
     Dosage: CONTINUOUS INFUSION ON HOSPITAL DAY 17?28
     Route: 042

REACTIONS (15)
  - Cutaneous T-cell lymphoma [Fatal]
  - Electrolyte imbalance [Fatal]
  - Sepsis [Fatal]
  - Pancytopenia [Fatal]
  - Skin exfoliation [Fatal]
  - Metabolic acidosis [Fatal]
  - Hypothermia [Fatal]
  - Hallucination, visual [Unknown]
  - Paranoia [Unknown]
  - Disorientation [Unknown]
  - Sedation [Unknown]
  - Tachycardia [Unknown]
  - Thrombocytopenia [Unknown]
  - Hypertension [Unknown]
  - Bradycardia [Unknown]
